FAERS Safety Report 12721226 (Version 1)
Quarter: 2016Q3

REPORT INFORMATION
  Report Type: Spontaneous
  Country: US (occurrence: US)
  Receive Date: 20160907
  Receipt Date: 20160907
  Transmission Date: 20161109
  Serious: No
  Sender: FDA-Public Use
  Company Number: US-APOTEX-2015AP015207

PATIENT
  Age: 35 Year
  Sex: Female

DRUGS (3)
  1. FLUCONAZOLE TABLETS [Suspect]
     Active Substance: FLUCONAZOLE
     Route: 048
  2. CIPROFLOXACIN HYDROCHLORIDE. [Suspect]
     Active Substance: CIPROFLOXACIN HYDROCHLORIDE
     Indication: URINARY TRACT INFECTION
     Dosage: UNK
     Route: 065
  3. FLUCONAZOLE TABLETS [Suspect]
     Active Substance: FLUCONAZOLE
     Indication: VULVOVAGINAL CANDIDIASIS
     Dosage: UNK
     Route: 065

REACTIONS (1)
  - Fixed drug eruption [Unknown]
